FAERS Safety Report 6831303-9 (Version None)
Quarter: 2010Q3

REPORT INFORMATION
  Report Type: 
  Country: None (occurrence: None)
  Receive Date: 20100709
  Receipt Date: 20100709
  Transmission Date: 20110219
  Serious: No
  Sender: FDA-Public Use
  Company Number: None

PATIENT
  Age: 50 Year

DRUGS (1)
  1. AMPYRA [Suspect]
     Dosage: 10MG BID PO
     Route: 048

REACTIONS (2)
  - ERYTHEMA [None]
  - FORMICATION [None]
